FAERS Safety Report 18259149 (Version 2)
Quarter: 2020Q4

REPORT INFORMATION
  Report Type: Spontaneous
  Country: US (occurrence: US)
  Receive Date: 20200911
  Receipt Date: 20201130
  Transmission Date: 20210113
  Serious: No
  Sender: FDA-Public Use
  Company Number: US-PFIZER INC-2020350693

PATIENT
  Age: 54 Year
  Sex: Female

DRUGS (1)
  1. IBRANCE [Suspect]
     Active Substance: PALBOCICLIB
     Indication: BREAST CANCER FEMALE
     Dosage: 125 MG, CYCLIC (DAILY FOR 21 DAYS ON, 7 DAYS OFF)
     Route: 048
     Dates: start: 202007

REACTIONS (2)
  - Tumour marker increased [Unknown]
  - Nausea [Unknown]

NARRATIVE: CASE EVENT DATE: 2020
